FAERS Safety Report 9719153 (Version 1)
Quarter: 2013Q4

REPORT INFORMATION
  Report Type: Spontaneous
  Country: DE (occurrence: DE)
  Receive Date: 20131127
  Receipt Date: 20131127
  Transmission Date: 20140711
  Serious: Yes (Hospitalization)
  Sender: FDA-Public Use
  Company Number: GXKR2013DE003651

PATIENT
  Sex: 0

DRUGS (10)
  1. CLOZAPINE [Suspect]
     Dosage: 0 - 400 MG
     Route: 048
     Dates: start: 20130507, end: 20130729
  2. CLOZAPINE [Suspect]
     Dosage: 400 - 500 MG
     Route: 048
     Dates: start: 20130730, end: 20130806
  3. CLOZAPINE [Suspect]
     Dosage: 500 - 600 MG
     Route: 048
     Dates: start: 20130807, end: 20130823
  4. CLOZAPINE [Suspect]
     Dosage: 300 MG, UNK
     Route: 048
     Dates: start: 20130824, end: 20130903
  5. CLOZAPINE [Suspect]
     Dosage: 250 MG, UNK
     Route: 048
     Dates: start: 20130904, end: 20130929
  6. CLOZAPINE [Suspect]
     Dosage: 250 - 125 MG
     Route: 048
     Dates: start: 20130930
  7. BENPERIDOL [Suspect]
     Dosage: 2 MG, UNK
     Route: 048
     Dates: start: 20130729, end: 20130729
  8. BENPERIDOL [Suspect]
     Dosage: 4 MG, UNK
     Route: 048
     Dates: start: 20130730, end: 20130807
  9. BENPERIDOL [Suspect]
     Dosage: 3 MG, UNK
     Route: 048
     Dates: start: 20130808, end: 20130816
  10. BENPERIDOL [Suspect]
     Dosage: 3 - 1 MG
     Route: 048
     Dates: start: 20130817, end: 20130823

REACTIONS (2)
  - Hypotonia [Recovering/Resolving]
  - Myoclonus [Recovering/Resolving]
